FAERS Safety Report 15134815 (Version 2)
Quarter: 2018Q4

REPORT INFORMATION
  Report Type: Spontaneous
  Country: US (occurrence: US)
  Receive Date: 20180712
  Receipt Date: 20181129
  Transmission Date: 20190204
  Serious: Yes (Other)
  Sender: FDA-Public Use
  Company Number: US-PFIZER INC-2018279953

PATIENT
  Sex: Male

DRUGS (1)
  1. LYRICA [Suspect]
     Active Substance: PREGABALIN
     Dosage: UNK

REACTIONS (6)
  - Stress [Unknown]
  - Pain [Unknown]
  - Ill-defined disorder [Unknown]
  - Condition aggravated [Unknown]
  - Speech disorder [Unknown]
  - Ankylosing spondylitis [Unknown]
